FAERS Safety Report 17824042 (Version 2)
Quarter: 2020Q2

REPORT INFORMATION
  Report Type: Spontaneous
  Country: US (occurrence: US)
  Receive Date: 20200526
  Receipt Date: 20200616
  Transmission Date: 20200714
  Serious: Yes (Other)
  Sender: FDA-Public Use
  Company Number: US-ACCORD-183178

PATIENT
  Sex: Female
  Weight: 130 kg

DRUGS (2)
  1. AMLODIPINE [Concomitant]
     Active Substance: AMLODIPINE BESYLATE
  2. CAPECITABINE. [Suspect]
     Active Substance: CAPECITABINE
     Indication: COLON CANCER
     Dosage: DOSE:3 /500 MG FREQUENCY: TWICE A DAY ORAL/2 WEEKS ON AND ONE WEEK OFF.
     Dates: start: 20190520

REACTIONS (1)
  - Carcinoembryonic antigen increased [Unknown]
